FAERS Safety Report 13586599 (Version 3)
Quarter: 2018Q3

REPORT INFORMATION
  Report Type: Report from Study
  Country: DE (occurrence: DE)
  Receive Date: 20170526
  Receipt Date: 20180829
  Transmission Date: 20181010
  Serious: Yes (Other)
  Sender: FDA-Public Use
  Company Number: DE-SA-2017SA091513

PATIENT
  Age: 1 Day
  Sex: Male

DRUGS (1)
  1. ALEMTUZUMAB [Suspect]
     Active Substance: ALEMTUZUMAB
     Indication: MULTIPLE SCLEROSIS
     Dosage: UNK UNK,UNK
     Route: 064

REACTIONS (3)
  - Congenital hydronephrosis [Unknown]
  - Foetal exposure during pregnancy [Unknown]
  - Renal aplasia [Unknown]
